FAERS Safety Report 8266683-3 (Version None)
Quarter: 2012Q2

REPORT INFORMATION
  Report Type: 
  Country: None (occurrence: None)
  Receive Date: 20120408
  Receipt Date: 20120326
  Transmission Date: 20120825
  Serious: Yes (Other)
  Sender: FDA-Public Use
  Company Number: US-BRISTOL-MYERS SQUIBB COMPANY-16476053

PATIENT
  Age: 11 Year
  Sex: Male

DRUGS (6)
  1. ETOPOSIDE [Suspect]
     Indication: HODGKIN'S DISEASE
     Dosage: FOR 3 DAYS
  2. IFOSFAMIDE [Suspect]
     Indication: HODGKIN'S DISEASE
     Dosage: PER DOSE FOR 4 DAYS
  3. CYCLOPHOSPHAMIDE [Suspect]
     Indication: HODGKIN'S DISEASE
     Dosage: FOR 3 DAYS
  4. VINORELBINE [Suspect]
     Indication: HODGKIN'S DISEASE
     Dosage: ON DAY 1 AND 5
  5. CARMUSTINE [Suspect]
     Indication: HODGKIN'S DISEASE
     Dosage: FOR 3 DAYS
  6. METHYLPREDNISOLONE [Suspect]
     Indication: HODGKIN'S DISEASE

REACTIONS (1)
  - POST TRANSPLANT LYMPHOPROLIFERATIVE DISORDER [None]
